FAERS Safety Report 10202990 (Version 1)
Quarter: 2014Q2

REPORT INFORMATION
  Report Type: Spontaneous
  Country: US (occurrence: US)
  Receive Date: 20140528
  Receipt Date: 20140528
  Transmission Date: 20141212
  Serious: Yes (Hospitalization)
  Sender: FDA-Public Use
  Company Number: US-OTSUKA-US-2014-11100

PATIENT
  Sex: 0

DRUGS (4)
  1. ABILIFY MAINTENA [Suspect]
     Indication: SCHIZOAFFECTIVE DISORDER
     Dosage: 300 MG MILLIGRAM(S), QM
     Route: 030
     Dates: start: 2013, end: 20140408
  2. KLONOPIN [Concomitant]
     Indication: SCHIZOAFFECTIVE DISORDER
     Dosage: UNK
  3. LITHIUM [Concomitant]
     Indication: PRODUCT USED FOR UNKNOWN INDICATION
     Dosage: UNK
  4. ATIVAN [Concomitant]
     Indication: PRODUCT USED FOR UNKNOWN INDICATION
     Dosage: UNK

REACTIONS (3)
  - Schizoaffective disorder [Recovered/Resolved]
  - Catatonia [Recovered/Resolved]
  - Off label use [Unknown]
